FAERS Safety Report 6819665-X (Version None)
Quarter: 2010Q3

REPORT INFORMATION
  Report Type: 
  Country: None (occurrence: None)
  Receive Date: 20100707
  Receipt Date: 20100624
  Transmission Date: 20110219
  Serious: Yes (Hospitalization)
  Sender: FDA-Public Use
  Company Number: DE-ELI_LILLY_AND_COMPANY-DE201006000030

PATIENT
  Sex: Male
  Weight: 75 kg

DRUGS (13)
  1. PEMETREXED [Suspect]
     Dosage: 989.3 MG, UNK
     Route: 042
     Dates: start: 20100407
  2. PEMETREXED [Suspect]
     Dosage: 978.7 MG, UNK
     Dates: start: 20100428
  3. CISPLATIN [Suspect]
     Dosage: 148.4 MG, UNK
     Route: 042
     Dates: start: 20100407
  4. CISPLATIN [Suspect]
     Dosage: 146.8 MG, UNK
     Dates: start: 20100428
  5. RADIATION [Suspect]
  6. LORAZEPAM [Concomitant]
     Indication: DEPRESSION
  7. OPIPRAMOL [Concomitant]
     Indication: DEPRESSION
  8. DICLOFENAC SODIUM [Concomitant]
     Indication: PAIN
     Dates: start: 20100412
  9. FOLSAN [Concomitant]
  10. METOPROLOL TARTRATE [Concomitant]
     Indication: CORONARY ARTERY DISEASE
  11. DELIX [Concomitant]
     Indication: HYPERTENSION
  12. ASPIRIN [Concomitant]
     Indication: CORONARY ARTERY DISEASE
  13. PANTAZOL [Concomitant]
     Indication: DYSPHAGIA
     Dates: start: 20100412

REACTIONS (1)
  - DYSPHAGIA [None]
